FAERS Safety Report 18999412 (Version 1)
Quarter: 2021Q1

REPORT INFORMATION
  Report Type: Spontaneous
  Country: SE (occurrence: SE)
  Receive Date: 20210312
  Receipt Date: 20210312
  Transmission Date: 20210420
  Serious: Yes (Other)
  Sender: FDA-Public Use
  Company Number: SE-TEVA-2021-SE-1888239

PATIENT
  Age: 62 Year
  Sex: Male

DRUGS (4)
  1. ENALAPRIL [Suspect]
     Active Substance: ENALAPRIL
     Indication: HYPERTENSION
     Dosage: 20 MG
     Route: 048
     Dates: start: 20170504, end: 20210112
  2. OMEPRAZOLE. [Concomitant]
     Active Substance: OMEPRAZOLE
     Dates: start: 2017, end: 2021
  3. TROMBYL [Concomitant]
     Active Substance: ASPIRIN
     Dates: start: 2017, end: 2021
  4. ATENOLOL. [Concomitant]
     Active Substance: ATENOLOL
     Dates: start: 2017, end: 2021

REACTIONS (2)
  - Cholestasis [Not Recovered/Not Resolved]
  - Cholecystitis [Not Recovered/Not Resolved]

NARRATIVE: CASE EVENT DATE: 2017
